FAERS Safety Report 11154659 (Version 1)
Quarter: 2015Q2

REPORT INFORMATION
  Report Type: Other
  Country: US (occurrence: US)
  Receive Date: 20150602
  Receipt Date: 20150602
  Transmission Date: 20150821
  Serious: Yes (Death, Other)
  Sender: FDA-Public Use
  Company Number: US-ACTELION-A-CH2015-118151

PATIENT
  Age: 33 Month
  Sex: Male

DRUGS (5)
  1. CARNITINE [Concomitant]
     Active Substance: CARNITINE
  2. VELETRI [Suspect]
     Active Substance: EPOPROSTENOL
     Indication: PULMONARY ARTERIAL HYPERTENSION
     Route: 042
  3. RIBOFLAVIN [Concomitant]
     Active Substance: RIBOFLAVIN
  4. BIOTIN [Concomitant]
     Active Substance: BIOTIN
  5. COENZIME Q10 [Concomitant]

REACTIONS (7)
  - Death [Fatal]
  - Gastrostomy [Unknown]
  - Tracheostomy [Unknown]
  - Eye movement disorder [Unknown]
  - Cerebral infarction [Unknown]
  - Drug ineffective [Unknown]
  - Status epilepticus [Unknown]
